FAERS Safety Report 25462708 (Version 1)
Quarter: 2025Q2

REPORT INFORMATION
  Report Type: Spontaneous
  Country: JP (occurrence: JP)
  Receive Date: 20250620
  Receipt Date: 20250620
  Transmission Date: 20250716
  Serious: Yes (Hospitalization, Other)
  Sender: PFIZER
  Company Number: JP-ONO-2025JP010422

PATIENT
  Sex: Male

DRUGS (6)
  1. BRAFTOVI [Suspect]
     Active Substance: ENCORAFENIB
     Indication: Colon cancer
     Route: 048
     Dates: end: 202506
  2. BRAFTOVI [Suspect]
     Active Substance: ENCORAFENIB
     Route: 048
  3. MEKTOVI [Suspect]
     Active Substance: BINIMETINIB
     Indication: Colon cancer
     Route: 048
     Dates: end: 202506
  4. MEKTOVI [Suspect]
     Active Substance: BINIMETINIB
     Route: 048
  5. ERBITUX [Suspect]
     Active Substance: CETUXIMAB
     Indication: Colon cancer
     Dates: end: 202506
  6. ERBITUX [Suspect]
     Active Substance: CETUXIMAB

REACTIONS (3)
  - Skin disorder [Recovering/Resolving]
  - Colon cancer [Unknown]
  - Malignant neoplasm progression [Unknown]
